FAERS Safety Report 22116857 (Version 1)
Quarter: 2023Q1

REPORT INFORMATION
  Report Type: Spontaneous
  Country: GB (occurrence: GB)
  Receive Date: 20230320
  Receipt Date: 20230320
  Transmission Date: 20230417
  Serious: Yes (Other)
  Sender: FDA-Public Use
  Company Number: GB-MHRA-MED-202303131948289850-PMZKV

PATIENT

DRUGS (1)
  1. PREMARIN [Suspect]
     Active Substance: ESTROGENS, CONJUGATED

REACTIONS (9)
  - Abdominal pain upper [Not Recovered/Not Resolved]
  - Asthenia [Unknown]
  - Hyperhidrosis [Unknown]
  - Chills [Unknown]
  - Gastrooesophageal reflux disease [Unknown]
  - Back pain [Unknown]
  - Abdominal distension [Unknown]
  - Nausea [Unknown]
  - Abdominal discomfort [Unknown]
